FAERS Safety Report 22103575 (Version 1)
Quarter: 2023Q1

REPORT INFORMATION
  Report Type: Spontaneous
  Country: US (occurrence: US)
  Receive Date: 20230316
  Receipt Date: 20230316
  Transmission Date: 20230417
  Serious: Yes (Hospitalization, Other)
  Sender: FDA-Public Use
  Company Number: US-VERTEX PHARMACEUTICALS-2023-000247

PATIENT
  Sex: Female

DRUGS (20)
  1. TRIKAFTA [Suspect]
     Active Substance: ELEXACAFTOR\IVACAFTOR\TEZACAFTOR
     Indication: Cystic fibrosis
     Dosage: FREQ UNK
     Route: 048
     Dates: end: 202212
  2. AZTREONAM LYSINE [Suspect]
     Active Substance: AZTREONAM LYSINE
     Indication: Cystic fibrosis
     Dosage: 75 MG
  3. AZITHROMYCIN [Concomitant]
     Active Substance: AZITHROMYCIN
     Dosage: UNKNOWN DOSAGE REGIMEN
  4. LEVOTHYROXINE SODIUM [Concomitant]
     Active Substance: LEVOTHYROXINE SODIUM
  5. ALBUTEROL SULFATE [Concomitant]
     Active Substance: ALBUTEROL SULFATE
  6. LACTULOSE [Concomitant]
     Active Substance: LACTULOSE
  7. LISINOPRIL [Concomitant]
     Active Substance: LISINOPRIL
  8. LORATADINE [Concomitant]
     Active Substance: LORATADINE
  9. PROVENTIL [Concomitant]
     Active Substance: ALBUTEROL
  10. OMEPRAZOLE [Concomitant]
     Active Substance: OMEPRAZOLE
  11. SODIUM CHLORIDE [Concomitant]
     Active Substance: SODIUM CHLORIDE
  12. SUMATRIPTAN SUCCINATE [Concomitant]
     Active Substance: SUMATRIPTAN SUCCINATE
  13. PULMOZYME [Concomitant]
     Active Substance: DORNASE ALFA
  14. VITAMIN D [Concomitant]
     Active Substance: VITAMIN D NOS
  15. MAGNESIUM OXIDE [Concomitant]
     Active Substance: MAGNESIUM OXIDE
  16. TOBRAMYCIN [Concomitant]
     Active Substance: TOBRAMYCIN
  17. LANTUS [Concomitant]
     Active Substance: INSULIN GLARGINE
  18. SINGULAIR [Concomitant]
     Active Substance: MONTELUKAST SODIUM
  19. CAYSTON [Concomitant]
     Active Substance: AZTREONAM
  20. NOVOLOG [Concomitant]
     Active Substance: INSULIN ASPART

REACTIONS (5)
  - Hospitalisation [Unknown]
  - Hepatic enzyme increased [Not Recovered/Not Resolved]
  - Weight decreased [Recovering/Resolving]
  - Weight gain poor [Unknown]
  - Pneumonia [Not Recovered/Not Resolved]

NARRATIVE: CASE EVENT DATE: 20220101
